FAERS Safety Report 12980206 (Version 2)
Quarter: 2016Q4

REPORT INFORMATION
  Report Type: Spontaneous
  Country: US (occurrence: US)
  Receive Date: 20161128
  Receipt Date: 20161129
  Transmission Date: 20170207
  Serious: Yes (Other)
  Sender: FDA-Public Use
  Company Number: US-PFIZER INC-2016542007

PATIENT
  Age: 67 Year
  Sex: Male

DRUGS (3)
  1. PROPOFOL. [Suspect]
     Active Substance: PROPOFOL
     Dosage: 2 UG/KG/MIN, UNK (INFUSION AT A RATE OF 2 UG/KG/MIN AND TITRATED BASED ON EEG)
  2. PROPOFOL. [Suspect]
     Active Substance: PROPOFOL
     Indication: STATUS EPILEPTICUS
     Dosage: 100 MG, (1.5 MG/KG)
     Route: 040
  3. PROPOFOL. [Suspect]
     Active Substance: PROPOFOL
     Dosage: 5 UG/KG/MIN

REACTIONS (3)
  - Coma [Unknown]
  - Cardiotoxicity [Unknown]
  - Bradycardia [Unknown]
